FAERS Safety Report 21721283 (Version 1)
Quarter: 2022Q4

REPORT INFORMATION
  Report Type: Spontaneous
  Country: US (occurrence: US)
  Receive Date: 20221213
  Receipt Date: 20221213
  Transmission Date: 20230112
  Serious: Yes (Other)
  Sender: FDA-Public Use
  Company Number: US-GLAXOSMITHKLINE-US2022183379

PATIENT

DRUGS (1)
  1. ADVAIR DISKUS [Suspect]
     Active Substance: FLUTICASONE PROPIONATE\SALMETEROL XINAFOATE
     Indication: Chronic obstructive pulmonary disease
     Dosage: 1 DF, 1 PUFF INHALATION
     Route: 055

REACTIONS (6)
  - Syncope [Unknown]
  - Loss of consciousness [Unknown]
  - COVID-19 [Recovered/Resolved with Sequelae]
  - Memory impairment [Unknown]
  - Adverse drug reaction [Unknown]
  - Ill-defined disorder [Unknown]

NARRATIVE: CASE EVENT DATE: 20221011
